FAERS Safety Report 5865078-7 (Version None)
Quarter: 2008Q3

REPORT INFORMATION
  Report Type: 
  Country: None (occurrence: None)
  Receive Date: 20080829
  Receipt Date: 20080822
  Transmission Date: 20090109
  Serious: Yes (Hospitalization)
  Sender: FDA-Public Use
  Company Number: A0731307A

PATIENT
  Sex: Female
  Weight: 109.1 kg

DRUGS (3)
  1. AVANDIA [Suspect]
     Route: 048
     Dates: start: 20010719, end: 20060101
  2. AVANDAMET [Suspect]
     Route: 048
     Dates: start: 20060101, end: 20060101
  3. ENALAPRIL MALEATE [Concomitant]

REACTIONS (6)
  - ANEURYSM [None]
  - CARDIAC FAILURE CONGESTIVE [None]
  - HEPATITIS [None]
  - INJURY [None]
  - LIVER INJURY [None]
  - PAIN [None]
